FAERS Safety Report 7015027-3 (Version None)
Quarter: 2010Q3

REPORT INFORMATION
  Report Type: 
  Country: None (occurrence: None)
  Receive Date: 20100927
  Receipt Date: 20100330
  Transmission Date: 20110219
  Serious: Yes (Hospitalization)
  Sender: FDA-Public Use
  Company Number: US-ASTRAZENECA-2010SE08365

PATIENT
  Age: 985 Month
  Sex: Female

DRUGS (7)
  1. ARIMIDEX [Suspect]
     Route: 048
     Dates: start: 20060101
  2. ATENOLOL [Concomitant]
  3. MULTI-VITAMIN [Concomitant]
  4. COUMADIN [Concomitant]
  5. CALCIUM [Concomitant]
  6. LIPITOR [Concomitant]
  7. VITAMIN D [Concomitant]

REACTIONS (1)
  - CEREBROVASCULAR ACCIDENT [None]
